FAERS Safety Report 22784000 (Version 2)
Quarter: 2023Q4

REPORT INFORMATION
  Report Type: Spontaneous
  Country: US (occurrence: US)
  Receive Date: 20230803
  Receipt Date: 20231006
  Transmission Date: 20240109
  Serious: No
  Sender: FDA-Public Use
  Company Number: US-SA-SAC20230801001425

PATIENT
  Sex: Male

DRUGS (1)
  1. DUPIXENT [Suspect]
     Active Substance: DUPILUMAB
     Dosage: 300 MG, OTHER
     Route: 058

REACTIONS (9)
  - Eyelid pain [Recovered/Resolved]
  - Eczema [Unknown]
  - Hand dermatitis [Unknown]
  - Hordeolum [Recovered/Resolved]
  - Skin fissures [Unknown]
  - Pain [Unknown]
  - Movement disorder [Unknown]
  - Condition aggravated [Unknown]
  - Swelling of eyelid [Not Recovered/Not Resolved]

NARRATIVE: CASE EVENT DATE: 20230601
